FAERS Safety Report 18993123 (Version 1)
Quarter: 2021Q1

REPORT INFORMATION
  Report Type: Spontaneous
  Country: US (occurrence: US)
  Receive Date: 20210310
  Receipt Date: 20210310
  Transmission Date: 20210420
  Serious: Yes (Other)
  Sender: FDA-Public Use
  Company Number: US-GLAXOSMITHKLINE-US2021AMR058111

PATIENT
  Sex: Female

DRUGS (1)
  1. ZEJULA [Suspect]
     Active Substance: NIRAPARIB
     Indication: OVARIAN CANCER
     Dosage: 3 DF (CAPSULE), QD
     Route: 048
     Dates: start: 20210210

REACTIONS (4)
  - Product dose omission in error [Unknown]
  - Dry mouth [Unknown]
  - Neuropathy peripheral [Unknown]
  - Constipation [Unknown]
